FAERS Safety Report 7626111-5 (Version None)
Quarter: 2011Q3

REPORT INFORMATION
  Report Type: 
  Country: None (occurrence: None)
  Receive Date: 20110713
  Receipt Date: 20110628
  Transmission Date: 20111222
  Serious: Yes (Hospitalization)
  Sender: FDA-Public Use
  Company Number: 2011MA008147

PATIENT
  Age: 23 Year
  Sex: Female

DRUGS (7)
  1. RANITIDINE [Concomitant]
  2. FERROUS SULFATE TAB [Concomitant]
  3. VITAMIN AND MINERAL PRENATAL SUPPLEMENT W/ FOLIC ACID CAP [Concomitant]
  4. AMPICILLIN SODIUM [Suspect]
     Indication: PREMATURE RUPTURE OF MEMBRANES
     Dosage: IV
     Route: 042
  5. BETAMETHASONE DIPROPIONATE [Suspect]
     Indication: PREMATURE LABOUR
     Dosage: 12 MG, IM
     Route: 030
  6. ERYTHROMYCIN [Suspect]
     Indication: PREMATURE RUPTURE OF MEMBRANES
     Dosage: IV
     Route: 042
  7. LACTATED RINGER'S [Suspect]
     Indication: PREMATURE RUPTURE OF MEMBRANES
     Dosage: 125 ML/HR, IV
     Route: 042

REACTIONS (8)
  - MATERNAL EXPOSURE DURING PREGNANCY [None]
  - CHORIOAMNIONITIS [None]
  - HYPOKALAEMIA [None]
  - GAIT DISTURBANCE [None]
  - ANAEMIA [None]
  - CAESAREAN SECTION [None]
  - MUSCULAR WEAKNESS [None]
  - BLOOD MAGNESIUM DECREASED [None]
